FAERS Safety Report 13009045 (Version 3)
Quarter: 2017Q4

REPORT INFORMATION
  Report Type: Spontaneous
  Country: DE (occurrence: DE)
  Receive Date: 20161208
  Receipt Date: 20171215
  Transmission Date: 20180320
  Serious: Yes (Hospitalization)
  Sender: FDA-Public Use
  Company Number: DE-PFIZER INC-2016560289

PATIENT
  Age: 46 Year
  Sex: Male

DRUGS (3)
  1. ZELDOX [Suspect]
     Active Substance: ZIPRASIDONE
     Dosage: 80 MG, 2X/DAY
     Dates: start: 20161101, end: 20161126
  2. ZELDOX [Suspect]
     Active Substance: ZIPRASIDONE
     Dosage: 80 MG, UNK
     Dates: end: 20171121
  3. ZELDOX [Suspect]
     Active Substance: ZIPRASIDONE
     Dosage: 80 MG, UNK
     Dates: start: 2012

REACTIONS (8)
  - Eye disorder [Unknown]
  - Gastric disorder [Unknown]
  - Non-cardiac chest pain [Unknown]
  - Headache [Unknown]
  - Nervous system disorder [Unknown]
  - Oesophageal pain [Unknown]
  - Cerebral disorder [Unknown]
  - Pruritus [Unknown]
